FAERS Safety Report 9262881 (Version 1)
Quarter: 2013Q2

REPORT INFORMATION
  Report Type: Spontaneous
  Country: US (occurrence: US)
  Receive Date: 20130430
  Receipt Date: 20130430
  Transmission Date: 20140414
  Serious: No
  Sender: FDA-Public Use
  Company Number: US-BAYER-2013-052655

PATIENT
  Age: 16 Year
  Sex: Female

DRUGS (1)
  1. GIANVI [Suspect]

REACTIONS (3)
  - Hepatic enzyme increased [None]
  - Urticaria [None]
  - Rash [None]
